FAERS Safety Report 8836122 (Version 2)
Quarter: 2013Q1

REPORT INFORMATION
  Report Type: Spontaneous
  Country: US (occurrence: US)
  Receive Date: 20121011
  Receipt Date: 20130102
  Transmission Date: 20140127
  Serious: Yes (Hospitalization)
  Sender: FDA-Public Use
  Company Number: US-GILEAD-2012-0062836

PATIENT
  Sex: Male

DRUGS (5)
  1. LETAIRIS [Suspect]
     Indication: PULMONARY ARTERIAL HYPERTENSION
     Dosage: 5 MG, UNK
     Route: 048
     Dates: start: 20120919
  2. LETAIRIS [Suspect]
     Indication: PULMONARY EMBOLISM
  3. LETAIRIS [Suspect]
     Indication: CONGENITAL HAEMATOLOGICAL DISORDER
  4. LETAIRIS [Suspect]
     Indication: PULMONARY VASCULAR DISORDER
  5. LETAIRIS [Suspect]
     Indication: IDIOPATHIC PULMONARY FIBROSIS

REACTIONS (1)
  - Dyspnoea [Unknown]
